FAERS Safety Report 13456324 (Version 2)
Quarter: 2017Q2

REPORT INFORMATION
  Report Type: Spontaneous
  Country: US (occurrence: US)
  Receive Date: 20170419
  Receipt Date: 20170512
  Transmission Date: 20170830
  Serious: Yes (Other)
  Sender: FDA-Public Use
  Company Number: US-PFIZER INC-2017163236

PATIENT
  Age: 64 Year
  Sex: Female
  Weight: 106.5 kg

DRUGS (6)
  1. WARFARIN SODIUM. [Concomitant]
     Active Substance: WARFARIN SODIUM
     Indication: ANTICOAGULANT THERAPY
     Dosage: 5 MG, 1X/DAY (AT NIGHT)
     Route: 048
  2. TRAMADOL. [Concomitant]
     Active Substance: TRAMADOL
     Indication: PAIN
     Dosage: 50 MG, 2X/DAY
     Route: 048
  3. ANBESOL MAXIMUM STRENGTH [Suspect]
     Active Substance: BENZOCAINE
     Indication: TOOTHACHE
     Dosage: UNK(DIPPED Q- TIP IN BOTTLE, RUBBED ON GUM ABOVE TOOTH)
     Dates: start: 20170410, end: 20170410
  4. ANBESOL MAXIMUM STRENGTH [Suspect]
     Active Substance: BENZOCAINE
     Dosage: UNK(DIPPED Q- TIP IN BOTTLE, RUBBED ON GUM ABOVE TOOTH)
     Dates: start: 20170411, end: 20170411
  5. DIGOXIN. [Concomitant]
     Active Substance: DIGOXIN
     Indication: ARRHYTHMIA
     Dosage: 0.125 MG, 1X/DAY (NIGHT)
     Route: 048
  6. METOPROLOL TARTRATE. [Concomitant]
     Active Substance: METOPROLOL TARTRATE
     Indication: BLOOD PRESSURE ABNORMAL
     Dosage: 50 MG, 2X/DAY
     Route: 048

REACTIONS (4)
  - Nervousness [Recovered/Resolved]
  - Feeling hot [Recovered/Resolved]
  - Swelling face [Recovered/Resolved]
  - Lip disorder [Recovered/Resolved]

NARRATIVE: CASE EVENT DATE: 20170411
